FAERS Safety Report 4368916-2 (Version None)
Quarter: 2004Q2

REPORT INFORMATION
  Report Type: 
  Country: None (occurrence: None)
  Receive Date: 20040527
  Receipt Date: 20040203
  Transmission Date: 20050107
  Serious: No
  Sender: FDA-Public Use
  Company Number: 204527

PATIENT
  Age: 56 Year
  Sex: Female

DRUGS (2)
  1. RAPTIVA [Suspect]
     Indication: PSORIASIS
     Dosage: 1.4 ML, 1/WEEK, SUBCUTANEOUS; 1 MG/KG, SINGLE SUBCUTANEOUS
     Route: 058
     Dates: start: 20031209, end: 20031209
  2. RAPTIVA [Suspect]
     Indication: PSORIASIS
     Dosage: 1.4 ML, 1/WEEK, SUBCUTANEOUS; 1 MG/KG, SINGLE SUBCUTANEOUS
     Route: 058
     Dates: start: 20031201

REACTIONS (1)
  - PRURITUS [None]
